FAERS Safety Report 6499879-1 (Version None)
Quarter: 2009Q4

REPORT INFORMATION
  Report Type: 
  Country: None (occurrence: None)
  Receive Date: 20091214
  Receipt Date: 20091214
  Transmission Date: 20100525
  Serious: No
  Sender: FDA-Public Use
  Company Number: None

PATIENT
  Sex: Female
  Weight: 63.5036 kg

DRUGS (1)
  1. DILANTIN KAPSEAL [Suspect]
     Indication: ELECTROENCEPHALOGRAM ABNORMAL
     Dosage: 1 CAPSULE DAILY PO
     Route: 048
     Dates: start: 20091122, end: 20091211

REACTIONS (2)
  - CAPSULE ISSUE [None]
  - DRUG INEFFECTIVE [None]
